FAERS Safety Report 6307925-0 (Version None)
Quarter: 2009Q3

REPORT INFORMATION
  Report Type: 
  Country: None (occurrence: None)
  Receive Date: 20090813
  Receipt Date: 20090804
  Transmission Date: 20100115
  Serious: Yes (Hospitalization, Other)
  Sender: FDA-Public Use
  Company Number: US-ELI_LILLY_AND_COMPANY-US200908000606

PATIENT
  Sex: Male
  Weight: 109.75 kg

DRUGS (22)
  1. BYETTA [Suspect]
     Indication: TYPE 2 DIABETES MELLITUS
     Dosage: 5 UG, 2/D
     Route: 058
     Dates: start: 20050101, end: 20050101
  2. BYETTA [Suspect]
     Dosage: 10 UG, 2/D
     Route: 058
     Dates: start: 20050101, end: 20090201
  3. BYETTA [Suspect]
     Dosage: 10 UG, EACH MORNING
     Route: 058
     Dates: start: 20090201
  4. METFORMIN [Concomitant]
     Indication: TYPE 2 DIABETES MELLITUS
     Dosage: 1000 MG, 2/D
  5. HUMALOG MIX /01500801/ [Concomitant]
     Indication: TYPE 2 DIABETES MELLITUS
     Dosage: 60 U, EACH MORNING
  6. HUMALOG MIX /01500801/ [Concomitant]
     Dosage: 45 U, EACH EVENING
  7. NOVOLOG [Concomitant]
     Dosage: UNK, OTHER
  8. SYNTHROID [Concomitant]
     Dosage: 125 MG, EACH MORNING
  9. RHINOCORT [Concomitant]
     Dosage: UNK, OTHER
  10. LOVASTATIN [Concomitant]
     Dosage: UNK, OTHER
  11. BUMETANIDE [Concomitant]
     Indication: DIURETIC THERAPY
     Dosage: 1 MG, OTHER
  12. AMLODIPINE [Concomitant]
     Dosage: 5 MG, EACH MORNING
  13. METOPROLOL [Concomitant]
     Dosage: 25 MG, 2/D
  14. LYRICA [Concomitant]
     Dosage: 75 MG, EACH EVENING
  15. KLOR-CON [Concomitant]
     Indication: BLOOD POTASSIUM
     Dosage: 20 MG, EACH EVENING
  16. ISOSORBIDE [Concomitant]
     Dosage: 60 MG, 2/D
  17. PROTONIX [Concomitant]
     Dosage: 40 MG, EACH MORNING
  18. AVAPRO [Concomitant]
     Dosage: 150 MG, EACH MORNING
  19. SINGULAIR [Concomitant]
     Dosage: 10 MG, EACH EVENING
  20. ADVAIR HFA [Concomitant]
     Dosage: UNK, OTHER
  21. FLOMAX [Concomitant]
     Indication: URINE FLOW DECREASED
     Dosage: 0.4 MG, OTHER
  22. AVODART [Concomitant]
     Indication: URINE FLOW DECREASED
     Dosage: 0.5 MG, EACH EVENING

REACTIONS (15)
  - BLOOD GLUCOSE DECREASED [None]
  - BLOOD GLUCOSE INCREASED [None]
  - CHEST PAIN [None]
  - DEPRESSED LEVEL OF CONSCIOUSNESS [None]
  - DIZZINESS [None]
  - HEADACHE [None]
  - HYPOGLYCAEMIC UNCONSCIOUSNESS [None]
  - INCORRECT STORAGE OF DRUG [None]
  - LIMB DISCOMFORT [None]
  - MOVEMENT DISORDER [None]
  - OFF LABEL USE [None]
  - SPEECH DISORDER [None]
  - TRANSIENT ISCHAEMIC ATTACK [None]
  - VOMITING [None]
  - WEIGHT DECREASED [None]
